FAERS Safety Report 4377779-0 (Version None)
Quarter: 2004Q2

REPORT INFORMATION
  Report Type: 
  Country: None (occurrence: None)
  Receive Date: 20040615
  Receipt Date: 20040615
  Transmission Date: 20050107
  Serious: Yes (Hospitalization)
  Sender: FDA-Public Use
  Company Number: None

PATIENT
  Age: 69 Year
  Sex: Female
  Weight: 93.1 kg

DRUGS (12)
  1. CYTOXAN [Suspect]
     Indication: BREAST CANCER
     Dosage: 100 MG/M2 DAILY X 14 ORAL
     Route: 048
     Dates: start: 20040527, end: 20040609
  2. METHOTREXATE [Suspect]
     Indication: BREAST CANCER
     Dosage: 40 MG/M2 DI AND 8 IV
     Route: 042
     Dates: start: 20040527, end: 20040603
  3. ZOCOR [Concomitant]
  4. CLONIDINE HCL [Concomitant]
  5. METFORMIN HCL [Concomitant]
  6. TRIAMTERE/HCTZ [Concomitant]
  7. DIOVAN [Concomitant]
  8. COUMADIN [Concomitant]
  9. MULTI-VITAMINS [Concomitant]
  10. PERCOCET [Concomitant]
  11. OSCAL [Concomitant]
  12. FLUOROURACIL [Concomitant]

REACTIONS (6)
  - BACK PAIN [None]
  - CHILLS [None]
  - FEELING ABNORMAL [None]
  - NEUTROPHIL COUNT DECREASED [None]
  - PYREXIA [None]
  - WHITE BLOOD CELL COUNT DECREASED [None]
